FAERS Safety Report 8240947-1 (Version None)
Quarter: 2012Q1

REPORT INFORMATION
  Report Type: 
  Country: None (occurrence: None)
  Receive Date: 20120328
  Receipt Date: 20120319
  Transmission Date: 20120608
  Serious: Yes (Hospitalization, Other)
  Sender: FDA-Public Use
  Company Number: US-ASTRAZENECA-2010SE23525

PATIENT
  Age: 42 Year
  Sex: Female
  Weight: 111.1 kg

DRUGS (7)
  1. SEROQUEL [Suspect]
     Indication: POST-TRAUMATIC STRESS DISORDER
     Dosage: 25 MG THREE TIMES A DAY, 300 MG AT BED TIME
     Route: 048
     Dates: start: 20090601
  2. AVIANNE [Concomitant]
     Indication: INSOMNIA
  3. LANESTA [Concomitant]
     Indication: INSOMNIA
  4. SEROQUEL [Suspect]
     Indication: ANGER
     Dosage: 25 MG THREE TIMES A DAY, 300 MG AT BED TIME
     Route: 048
     Dates: start: 20090601
  5. SEROQUEL [Suspect]
     Indication: PANIC ATTACK
     Dosage: 25 MG THREE TIMES A DAY, 300 MG AT BED TIME
     Route: 048
     Dates: start: 20090601
  6. SEROQUEL [Suspect]
     Indication: DEPRESSION
     Dosage: 25 MG THREE TIMES A DAY, 300 MG AT BED TIME
     Route: 048
     Dates: start: 20090601
  7. THYROID PILL [Concomitant]
     Indication: THYROID DISORDER
     Dosage: EVERY MORNING

REACTIONS (13)
  - DEPRESSED MOOD [None]
  - PANIC ATTACK [None]
  - OFF LABEL USE [None]
  - INTENTIONAL DRUG MISUSE [None]
  - FEELING OF DESPAIR [None]
  - ROAD TRAFFIC ACCIDENT [None]
  - MALAISE [None]
  - DIARRHOEA [None]
  - VOMITING [None]
  - WEIGHT INCREASED [None]
  - THERAPEUTIC RESPONSE UNEXPECTED [None]
  - GASTROENTERITIS VIRAL [None]
  - INSOMNIA [None]
